FAERS Safety Report 21620680 (Version 1)
Quarter: 2022Q4

REPORT INFORMATION
  Report Type: Spontaneous
  Country: BY (occurrence: BY)
  Receive Date: 20221121
  Receipt Date: 20221121
  Transmission Date: 20230113
  Serious: Yes (Hospitalization)
  Sender: FDA-Public Use
  Company Number: BY-KOREA IPSEN Pharma-2022-31361

PATIENT
  Age: 29 Year
  Sex: Female

DRUGS (6)
  1. DYSPORT [Suspect]
     Active Substance: ABOBOTULINUMTOXINA
     Indication: Skin wrinkling
     Dosage: NOT REPORTED
     Route: 058
     Dates: start: 20150204, end: 20150204
  2. DYSPORT [Suspect]
     Active Substance: ABOBOTULINUMTOXINA
     Indication: Skin wrinkling
  3. DYSPORT [Suspect]
     Active Substance: ABOBOTULINUMTOXINA
     Indication: Skin wrinkling
  4. DYSPORT [Suspect]
     Active Substance: ABOBOTULINUMTOXINA
     Indication: Off label use
  5. RADIESSE [Suspect]
     Active Substance: TRIBASIC CALCIUM PHOSPHATE
     Indication: Skin wrinkling
     Dosage: NOT REPORTED
     Route: 065
  6. LYRICA [Concomitant]
     Active Substance: PREGABALIN

REACTIONS (15)
  - Angioedema [Unknown]
  - Urticaria [Unknown]
  - Asthma [Unknown]
  - Rhinitis allergic [Unknown]
  - Vasomotor rhinitis [Unknown]
  - Trigeminal neuralgia [Unknown]
  - Complex regional pain syndrome [Unknown]
  - Somatic symptom disorder [Recovering/Resolving]
  - Sensitisation [Unknown]
  - Asthenia [Unknown]
  - Facial pain [Unknown]
  - Facial asymmetry [Unknown]
  - Skin indentation [Recovering/Resolving]
  - Incorrect route of product administration [Unknown]
  - Off label use [Unknown]

NARRATIVE: CASE EVENT DATE: 20150101
